FAERS Safety Report 4403755-5 (Version None)
Quarter: 2004Q3

REPORT INFORMATION
  Report Type: 
  Country: None (occurrence: None)
  Receive Date: 20040719
  Receipt Date: 20040702
  Transmission Date: 20050211
  Serious: Yes (Hospitalization)
  Sender: FDA-Public Use
  Company Number: 2004-BP-05329BP(0)

PATIENT
  Age: 61 Year
  Sex: Female

DRUGS (3)
  1. MOBIC [Suspect]
     Indication: OSTEOARTHRITIS
     Dosage: PO
     Route: 048
     Dates: start: 20020101, end: 20040101
  2. SODIUM  FLUORIDE TOOTHPASTE [Suspect]
     Indication: DENTAL CLEANING
     Dosage: DE
  3. FENTANYL [Concomitant]

REACTIONS (11)
  - ASTHENIA [None]
  - CARDIOMYOPATHY [None]
  - DRY MOUTH [None]
  - ELECTROCARDIOGRAM ABNORMAL [None]
  - FLUID RETENTION [None]
  - GASTRIC ULCER HAEMORRHAGE [None]
  - ORAL DISCOMFORT [None]
  - RIGHT VENTRICULAR FAILURE [None]
  - SENSORY DISTURBANCE [None]
  - TOOTH DISCOLOURATION [None]
  - TOOTH DISORDER [None]
